FAERS Safety Report 4525627-8 (Version None)
Quarter: 2004Q4

REPORT INFORMATION
  Report Type: 
  Country: None (occurrence: None)
  Receive Date: 20041213
  Receipt Date: 20041213
  Transmission Date: 20050328
  Serious: No
  Sender: FDA-Public Use
  Company Number: None

PATIENT
  Age: 77 Year
  Sex: Female
  Weight: 56.246 kg

DRUGS (2)
  1. VANCOMYCIN [Suspect]
     Dosage: 1000MG  Q24H INTRAVENOUS
     Route: 042
     Dates: start: 20041123, end: 20041127
  2. ROCEPHIN [Suspect]
     Dosage: 1000 MG Q24H INTRAVENOUS
     Route: 042

REACTIONS (4)
  - HAEMATOCRIT DECREASED [None]
  - HAEMOGLOBIN DECREASED [None]
  - RED BLOOD CELL COUNT DECREASED [None]
  - WHITE BLOOD CELL COUNT DECREASED [None]
